FAERS Safety Report 19082283 (Version 1)
Quarter: 2021Q2

REPORT INFORMATION
  Report Type: Spontaneous
  Country: GE (occurrence: GE)
  Receive Date: 20210401
  Receipt Date: 20210401
  Transmission Date: 20210717
  Serious: Yes (Other)
  Sender: FDA-Public Use
  Company Number: GE-MACLEODS PHARMACEUTICALS US LTD-MAC2021030585

PATIENT

DRUGS (2)
  1. METHYLPREDNISOLONE. [Suspect]
     Active Substance: METHYLPREDNISOLONE
     Indication: BENIGN FAMILIAL PEMPHIGUS
     Dosage: UNK
     Route: 065
  2. CLOBETASOL [Suspect]
     Active Substance: CLOBETASOL
     Indication: RASH
     Dosage: UNK
     Route: 065

REACTIONS (2)
  - Rosacea [Recovering/Resolving]
  - Rosacea [Unknown]
